FAERS Safety Report 9444067 (Version 1)
Quarter: 2013Q3

REPORT INFORMATION
  Report Type: Spontaneous
  Country: US (occurrence: None)
  Receive Date: 20130806
  Receipt Date: 20130806
  Transmission Date: 20140515
  Serious: Yes (Hospitalization)
  Sender: FDA-Public Use
  Company Number: None

PATIENT
  Age: 67 Year
  Sex: Female

DRUGS (1)
  1. SUTENT [Suspect]
     Indication: RENAL CANCER
     Dosage: 50MG  DAILY FOR 4 WEEKS, 2 WEEKS  PO
     Route: 048
     Dates: start: 201302, end: 201307

REACTIONS (6)
  - Fatigue [None]
  - Decreased appetite [None]
  - Dehydration [None]
  - Colitis [None]
  - Alopecia [None]
  - Ageusia [None]
